FAERS Safety Report 5020723-3 (Version None)
Quarter: 2006Q2

REPORT INFORMATION
  Report Type: 
  Country: None (occurrence: None)
  Receive Date: 20060601
  Receipt Date: 20060519
  Transmission Date: 20061013
  Serious: Yes (Hospitalization)
  Sender: FDA-Public Use
  Company Number: 14107

PATIENT
  Age: 65 Year
  Sex: Female

DRUGS (4)
  1. METHOTREXATE [Suspect]
     Dosage: 12.5 MG WEEKLY SC
     Route: 058
  2. ENBREL [Suspect]
     Dosage: 25 MG 2/WK SC
     Route: 058
     Dates: start: 20050712, end: 20051001
  3. ENBREL [Suspect]
     Dosage: 50 MG WEEKLY SC
     Route: 058
     Dates: start: 20051021
  4. PREDNISONE [Concomitant]

REACTIONS (4)
  - EAR PAIN [None]
  - INFLAMMATION [None]
  - PAIN IN JAW [None]
  - TEMPORAL ARTERITIS [None]
